FAERS Safety Report 25078884 (Version 2)
Quarter: 2025Q3

REPORT INFORMATION
  Report Type: Report from Study
  Country: KR (occurrence: KR)
  Receive Date: 20250314
  Receipt Date: 20250929
  Transmission Date: 20251021
  Serious: Yes (Hospitalization)
  Sender: MYLAN
  Company Number: KR-MYLANLABS-2025M1021289

PATIENT
  Sex: Male
  Weight: 78 kg

DRUGS (21)
  1. NEURONTIN [Suspect]
     Active Substance: GABAPENTIN
     Indication: Prophylaxis
     Dosage: 1 DOSAGE FORM, Q8H
     Dates: start: 20221202
  2. LYRICA [Suspect]
     Active Substance: PREGABALIN
     Indication: Prophylaxis
     Dosage: 1 DOSAGE FORM, BID
     Dates: start: 20220809, end: 20221201
  3. ALPRAZOLAM [Suspect]
     Active Substance: ALPRAZOLAM
     Indication: Prophylaxis
     Dosage: 1 DOSAGE FORM, QD
     Dates: start: 20230125
  4. BEVACIZUMAB [Suspect]
     Active Substance: BEVACIZUMAB
     Indication: Colorectal cancer metastatic
     Dosage: 370 MILLIGRAM, BIWEEKLY
     Dates: start: 20230117, end: 20230117
  5. OXYCODONE HYDROCHLORIDE [Suspect]
     Active Substance: OXYCODONE HYDROCHLORIDE
     Indication: Prophylaxis
     Dosage: 5 MILLIGRAM, QID
     Dates: start: 20221004, end: 20221128
  6. URSODIOL [Suspect]
     Active Substance: URSODIOL
     Indication: Blood alkaline phosphatase increased
     Dosage: 1 DOSAGE FORM, QID
     Dates: start: 20221202, end: 20230118
  7. MEGESTROL ACETATE [Suspect]
     Active Substance: MEGESTROL ACETATE
     Indication: Prophylaxis
     Dosage: UNK, QD
     Dates: start: 20221216
  8. ACETAMINOPHEN [Suspect]
     Active Substance: ACETAMINOPHEN
     Indication: Prophylaxis
     Dosage: 1 DOSAGE FORM, QID
     Dates: start: 20230117, end: 20230209
  9. PIPERACILLIN AND TAZOBACTAM [Suspect]
     Active Substance: PIPERACILLIN SODIUM\TAZOBACTAM SODIUM
     Indication: Inflammation
     Dosage: UNK, Q6H
     Dates: start: 20230123, end: 20230127
  10. ESOMEPRAZOLE SODIUM [Suspect]
     Active Substance: ESOMEPRAZOLE SODIUM
     Indication: Prophylaxis against gastrointestinal ulcer
     Dosage: UNK, QD
     Dates: start: 20230123, end: 20230123
  11. ALBUMIN TANNATE [Suspect]
     Active Substance: ALBUMIN TANNATE
     Indication: Prophylaxis
     Dosage: UNK, QD
     Dates: start: 20230126, end: 20230209
  12. LEVOFLOXACIN [Suspect]
     Active Substance: LEVOFLOXACIN
     Indication: Inflammation
     Dosage: UNK, QD
     Dates: start: 20230123, end: 20230127
  13. CALCIUM [Suspect]
     Active Substance: CALCIUM
     Indication: Prophylaxis
     Dosage: UNK, QD
     Dates: start: 20230125, end: 20230209
  14. FUROSEMIDE [Suspect]
     Active Substance: FUROSEMIDE
     Indication: Prophylaxis
     Dosage: UNK, QD
     Dates: start: 20230126, end: 20230126
  15. PROPACETAMOL HYDROCHLORIDE [Suspect]
     Active Substance: PROPACETAMOL HYDROCHLORIDE
     Indication: Pyrexia
     Dosage: UNK, QD
     Dates: start: 20230128, end: 20230208
  16. MEROPENEM [Suspect]
     Active Substance: MEROPENEM
     Indication: Inflammation
     Dosage: UNK, QID
     Dates: start: 20230128, end: 20230209
  17. CODEINE [Suspect]
     Active Substance: CODEINE
     Indication: Prophylaxis
     Dosage: 1 DOSAGE FORM, QD
     Dates: start: 20230202
  18. AMMONIUM CHLORIDE [Suspect]
     Active Substance: AMMONIUM CHLORIDE
     Indication: Prophylaxis
     Dosage: 1 DOSAGE FORM, QD
     Dates: start: 20230131
  19. METHYLEPHEDRINE HYDROCHLORIDE, (+/-)- [Suspect]
     Active Substance: METHYLEPHEDRINE HYDROCHLORIDE, (+/-)-
     Indication: Prophylaxis
     Dosage: 1 DOSAGE FORM, QD
     Dates: start: 20230131
  20. CHLORPHENIRAMINE MALEATE [Suspect]
     Active Substance: CHLORPHENIRAMINE MALEATE
     Indication: Prophylaxis
     Dosage: 1 DOSAGE FORM, QD
     Dates: start: 20230131
  21. DIHYDROCODEINE BITARTRATE [Suspect]
     Active Substance: DIHYDROCODEINE BITARTRATE
     Indication: Prophylaxis
     Dosage: 1 DOSAGE FORM, QD
     Dates: start: 20230131

REACTIONS (1)
  - Psoas abscess [Recovered/Resolved]

NARRATIVE: CASE EVENT DATE: 20230122
